FAERS Safety Report 12548736 (Version 1)
Quarter: 2016Q3

REPORT INFORMATION
  Report Type: Spontaneous
  Country: US (occurrence: US)
  Receive Date: 20160712
  Receipt Date: 20160712
  Transmission Date: 20161109
  Serious: No
  Sender: FDA-Public Use
  Company Number: US-B.I. PHARMACEUTICALS,INC./RIDGEFIELD-2016-BI-42145BP

PATIENT
  Age: 78 Year
  Sex: Female
  Weight: 39 kg

DRUGS (3)
  1. MIRAPEX [Suspect]
     Active Substance: PRAMIPEXOLE DIHYDROCHLORIDE
     Dosage: 1.5 MG
     Route: 048
     Dates: start: 201605, end: 20160626
  2. MIRAPEX [Suspect]
     Active Substance: PRAMIPEXOLE DIHYDROCHLORIDE
     Indication: PARKINSON^S DISEASE
     Dosage: 0.75 MG
     Route: 048
     Dates: start: 201603, end: 201605
  3. SELEGILINE [Concomitant]
     Active Substance: SELEGILINE
     Indication: PARKINSON^S DISEASE
     Dosage: 10 MG
     Route: 048
     Dates: start: 201602

REACTIONS (9)
  - Blood pressure increased [Recovered/Resolved]
  - Dysphonia [Not Recovered/Not Resolved]
  - Fatigue [Recovered/Resolved]
  - Tongue movement disturbance [Not Recovered/Not Resolved]
  - Rhinorrhoea [Not Recovered/Not Resolved]
  - Eye disorder [Recovered/Resolved]
  - Joint swelling [Not Recovered/Not Resolved]
  - Weight increased [Not Recovered/Not Resolved]
  - Medication error [Recovered/Resolved]

NARRATIVE: CASE EVENT DATE: 201605
